FAERS Safety Report 5898494-8 (Version None)
Quarter: 2008Q3

REPORT INFORMATION
  Report Type: 
  Country: None (occurrence: None)
  Receive Date: 20080925
  Receipt Date: 20071204
  Transmission Date: 20090109
  Serious: No
  Sender: FDA-Public Use
  Company Number: A0697255A

PATIENT
  Age: 37 Year
  Sex: Female

DRUGS (3)
  1. WELLBUTRIN XL [Suspect]
     Indication: OBSESSIVE-COMPULSIVE DISORDER
     Dosage: 150MG PER DAY
     Route: 048
     Dates: start: 20071119
  2. KLONOPIN [Suspect]
     Indication: ANXIETY
     Dosage: 1MG THREE TIMES PER DAY
     Route: 048
     Dates: start: 20071119
  3. CYMBALTA [Concomitant]

REACTIONS (4)
  - AFFECT LABILITY [None]
  - CRYING [None]
  - MOOD SWINGS [None]
  - PARANOIA [None]
